FAERS Safety Report 25511521 (Version 2)
Quarter: 2025Q4

REPORT INFORMATION
  Report Type: Report from Study
  Country: CA (occurrence: CA)
  Receive Date: 20250703
  Receipt Date: 20251028
  Transmission Date: 20260117
  Serious: Yes (Other)
  Sender: SANDOZ
  Company Number: CA-002147023-NVSC2022CA157223

PATIENT
  Sex: Male

DRUGS (1)
  1. HYRIMOZ [Suspect]
     Active Substance: ADALIMUMAB-ADAZ
     Indication: Rheumatoid arthritis
     Dosage: 40 MG, Q2W
     Route: 058
     Dates: start: 20220614

REACTIONS (8)
  - Neoplasm malignant [Unknown]
  - Pain [Unknown]
  - Impaired quality of life [Unknown]
  - Tendon disorder [Unknown]
  - General physical health deterioration [Unknown]
  - Joint swelling [Unknown]
  - Synovitis [Recovering/Resolving]
  - Pain in extremity [Unknown]
